FAERS Safety Report 13974128 (Version 1)
Quarter: 2017Q3

REPORT INFORMATION
  Report Type: Spontaneous
  Country: US (occurrence: US)
  Receive Date: 20170915
  Receipt Date: 20170915
  Transmission Date: 20171128
  Serious: No
  Sender: FDA-Public Use
  Company Number: US-BAUSCH-BL-2017-005675

PATIENT
  Age: 76 Year
  Sex: Female

DRUGS (4)
  1. MINOCYCLINE [Concomitant]
     Active Substance: MINOCYCLINE\MINOCYCLINE HYDROCHLORIDE
     Indication: LYME DISEASE
     Route: 048
  2. FLUOROURACIL 5% [Suspect]
     Active Substance: FLUOROURACIL
     Indication: SUNBURN
     Dosage: AS NEEDED
     Route: 061
     Dates: start: 20170224
  3. FLUOROURACIL 5% [Suspect]
     Active Substance: FLUOROURACIL
     Indication: HYPERKERATOSIS
  4. CEFDINIR. [Concomitant]
     Active Substance: CEFDINIR
     Indication: LYME DISEASE
     Route: 048

REACTIONS (3)
  - Drug ineffective [Unknown]
  - Skin exfoliation [Recovering/Resolving]
  - Skin burning sensation [Recovering/Resolving]

NARRATIVE: CASE EVENT DATE: 20170224
